FAERS Safety Report 5735459-0 (Version None)
Quarter: 2008Q2

REPORT INFORMATION
  Report Type: 
  Country: None (occurrence: None)
  Receive Date: 20080512
  Receipt Date: 20080502
  Transmission Date: 20081010
  Serious: Yes (Other)
  Sender: FDA-Public Use
  Company Number: US-PFIZER INC-2008038375

PATIENT
  Sex: Female
  Weight: 62.272 kg

DRUGS (9)
  1. LIPITOR [Suspect]
     Indication: BLOOD CHOLESTEROL
     Route: 048
     Dates: start: 20010801, end: 20080201
  2. ARICEPT [Concomitant]
  3. FLUOXETINE [Concomitant]
  4. LEVOTHYROXINE SODIUM [Concomitant]
  5. VESICARE [Concomitant]
  6. LYRICA [Concomitant]
  7. MIRAPEX [Concomitant]
  8. MULTIVITAMIN [Concomitant]
  9. VITAMINS [Concomitant]

REACTIONS (9)
  - ARTHROPATHY [None]
  - BLINDNESS [None]
  - BLOOD PRESSURE FLUCTUATION [None]
  - EYE DISORDER [None]
  - FATIGUE [None]
  - JOINT SWELLING [None]
  - MUSCLE ATROPHY [None]
  - OEDEMA PERIPHERAL [None]
  - POOR QUALITY SLEEP [None]
